FAERS Safety Report 9051284 (Version 2)
Quarter: 2013Q1

REPORT INFORMATION
  Report Type: Spontaneous
  Country: US (occurrence: US)
  Receive Date: 20130206
  Receipt Date: 20130301
  Transmission Date: 20140127
  Serious: Yes (Other)
  Sender: FDA-Public Use
  Company Number: PHHY2010US64273

PATIENT
  Age: 56 Year
  Sex: Male
  Weight: 93 kg

DRUGS (19)
  1. TASIGNA [Suspect]
     Indication: CHRONIC MYELOID LEUKAEMIA
     Dosage: 200 MG, BID
     Route: 048
     Dates: start: 20100127
  2. TASIGNA [Suspect]
     Dosage: 600 MG, DAILY
     Route: 048
  3. CELEXA [Concomitant]
  4. XANAX [Concomitant]
  5. ZIRTEC [Concomitant]
  6. MULTIVITAMINS [Concomitant]
  7. ASPIRIN [Concomitant]
  8. CRESTOR [Concomitant]
  9. METOPROLOL [Concomitant]
  10. NASONEX [Concomitant]
  11. GABAPENTIN [Concomitant]
  12. TRAZODONE HYDROCHLORIDE [Concomitant]
  13. GENERLAC [Concomitant]
  14. MORPHINE [Concomitant]
  15. OXYCODONE [Concomitant]
  16. CITALOPRAM [Concomitant]
  17. LIDODERM [Concomitant]
  18. DULCOLAX [Concomitant]
  19. DOCUSATE SODIUM [Concomitant]

REACTIONS (7)
  - VIIth nerve paralysis [Unknown]
  - Diabetes mellitus [Unknown]
  - Arthralgia [Not Recovered/Not Resolved]
  - Back pain [Not Recovered/Not Resolved]
  - Musculoskeletal stiffness [Not Recovered/Not Resolved]
  - Epistaxis [Not Recovered/Not Resolved]
  - Vision blurred [Not Recovered/Not Resolved]
